FAERS Safety Report 14788787 (Version 1)
Quarter: 2018Q2

REPORT INFORMATION
  Report Type: Spontaneous
  Country: US (occurrence: US)
  Receive Date: 20180423
  Receipt Date: 20180423
  Transmission Date: 20180711
  Serious: No
  Sender: FDA-Public Use
  Company Number: US-BIOGEN-2018BI00556005

PATIENT
  Sex: Male

DRUGS (1)
  1. SPINRAZA [Suspect]
     Active Substance: NUSINERSEN
     Indication: SPINAL MUSCULAR ATROPHY
     Route: 065
     Dates: start: 20180308

REACTIONS (5)
  - Post procedural haemorrhage [Unknown]
  - Procedural pain [Recovered/Resolved]
  - Post procedural contusion [Unknown]
  - Pneumonia [Unknown]
  - Muscular weakness [Unknown]
